FAERS Safety Report 5142350-X (Version None)
Quarter: 2006Q4

REPORT INFORMATION
  Report Type: 
  Country: None (occurrence: None)
  Receive Date: 20061102
  Receipt Date: 20061031
  Transmission Date: 20070319
  Serious: Yes (Other)
  Sender: FDA-Public Use
  Company Number: US-GLAXOSMITHKLINE-A0625582A

PATIENT
  Sex: Female

DRUGS (3)
  1. BACTROBAN [Suspect]
     Indication: NASAL CONGESTION
     Route: 045
  2. NO CONCURRENT MEDICATION [Concomitant]
  3. OMNICEF [Concomitant]

REACTIONS (1)
  - PSEUDOMEMBRANOUS COLITIS [None]
